FAERS Safety Report 26044700 (Version 1)
Quarter: 2025Q4

REPORT INFORMATION
  Report Type: Spontaneous
  Country: US (occurrence: US)
  Receive Date: 20251114
  Receipt Date: 20251114
  Transmission Date: 20260118
  Serious: No
  Sender: ALVOGEN
  Company Number: US-ALVOGEN-2025097746

PATIENT
  Sex: Female

DRUGS (1)
  1. TERIPARATIDE [Suspect]
     Active Substance: TERIPARATIDE
     Indication: Osteoporosis
     Dosage: EXPIRATION DATE: SEP-2025?USED THE INJECTION 11 OR 12 TIMES?PATIENT INJECTS DAILY

REACTIONS (6)
  - Device malfunction [Unknown]
  - Device operational issue [Unknown]
  - Device defective [Unknown]
  - Product dose omission issue [Unknown]
  - Product use issue [Unknown]
  - Wrong technique in product usage process [Unknown]

NARRATIVE: CASE EVENT DATE: 20250406
